FAERS Safety Report 7377830-X (Version None)
Quarter: 2011Q1

REPORT INFORMATION
  Report Type: 
  Country: None (occurrence: None)
  Receive Date: 20110328
  Receipt Date: 20110323
  Transmission Date: 20110831
  Serious: Yes (Death, Hospitalization)
  Sender: FDA-Public Use
  Company Number: FR-JNJFOC-20100603104

PATIENT
  Sex: Female

DRUGS (9)
  1. TRIATEC [Concomitant]
  2. LASIX [Concomitant]
  3. CARDENSIEL [Suspect]
     Route: 048
  4. CARDENSIEL [Suspect]
     Route: 048
  5. KARDEGIC [Concomitant]
  6. FLUINDIONE [Concomitant]
  7. ESIDRIX [Concomitant]
  8. SPORANOX [Suspect]
     Indication: PROPHYLAXIS
     Route: 048
  9. CARDENSIEL [Suspect]
     Indication: HYPERTENSION
     Route: 048

REACTIONS (7)
  - CARDIAC FAILURE [None]
  - CONDUCTION DISORDER [None]
  - SUDDEN DEATH [None]
  - TORSADE DE POINTES [None]
  - RESPIRATORY FAILURE [None]
  - BRONCHITIS [None]
  - SUPRAVENTRICULAR EXTRASYSTOLES [None]
